FAERS Safety Report 26046184 (Version 1)
Quarter: 2025Q4

REPORT INFORMATION
  Report Type: Spontaneous
  Country: EU (occurrence: None)
  Receive Date: 20251114
  Receipt Date: 20251114
  Transmission Date: 20260118
  Serious: Yes (Other)
  Sender: UCB
  Company Number: EU-UCBSA-2025071335

PATIENT

DRUGS (1)
  1. BIMZELX [Suspect]
     Active Substance: BIMEKIZUMAB-BKZX
     Indication: Psoriasis
     Dosage: 160 MILLIGRAM,

REACTIONS (2)
  - Psoriatic arthropathy [Unknown]
  - Palmoplantar pustulosis [Unknown]
